FAERS Safety Report 14288998 (Version 1)
Quarter: 2017Q4

REPORT INFORMATION
  Report Type: Spontaneous
  Country: IT (occurrence: IT)
  Receive Date: 20171214
  Receipt Date: 20171214
  Transmission Date: 20180321
  Serious: Yes (Hospitalization, Congenital Anomaly)
  Sender: FDA-Public Use
  Company Number: IT-ELI_LILLY_AND_COMPANY-IT201712000976

PATIENT
  Age: 1 Day
  Sex: Female

DRUGS (2)
  1. HUMALOG [Suspect]
     Active Substance: INSULIN LISPRO
     Indication: PRODUCT USED FOR UNKNOWN INDICATION
     Dosage: 56.7 IU, DAILY
     Route: 064
  2. HUMALOG [Suspect]
     Active Substance: INSULIN LISPRO
     Indication: PRODUCT USED FOR UNKNOWN INDICATION
     Dosage: 56.7 IU, DAILY
     Route: 064

REACTIONS (2)
  - Foetal exposure timing unspecified [Unknown]
  - Hypertrophic cardiomyopathy [Recovered/Resolved]

NARRATIVE: CASE EVENT DATE: 20171007
